FAERS Safety Report 20141555 (Version 1)
Quarter: 2021Q4

REPORT INFORMATION
  Report Type: Spontaneous
  Country: CN (occurrence: CN)
  Receive Date: 20211202
  Receipt Date: 20211202
  Transmission Date: 20220303
  Serious: Yes (Other)
  Sender: FDA-Public Use
  Company Number: CN-009507513-2111CHN009760

PATIENT
  Age: 53 Year
  Sex: Female
  Weight: 62.5 kg

DRUGS (6)
  1. KEYTRUDA [Suspect]
     Active Substance: PEMBROLIZUMAB
     Indication: Lung neoplasm malignant
     Dosage: 200 MG, ONCE
     Route: 041
     Dates: start: 20211123, end: 20211123
  2. CARBOPLATIN [Concomitant]
     Active Substance: CARBOPLATIN
     Indication: Lung neoplasm malignant
     Dosage: 600 MG (ALSO REPORTED AS 50 MG), ONCE
     Route: 041
     Dates: start: 20211123, end: 20211123
  3. PACLITAXEL [Concomitant]
     Active Substance: PACLITAXEL
     Indication: Lung neoplasm malignant
     Dosage: 400 MG (ALSO REPORTED AS 100 MG), ONCE
     Route: 041
     Dates: start: 20211123, end: 20211123
  4. DEXTROSE [Concomitant]
     Active Substance: DEXTROSE
     Dosage: 500 ML
     Dates: start: 20211123, end: 20211123
  5. SODIUM CHLORIDE [Concomitant]
     Active Substance: SODIUM CHLORIDE
     Dosage: 100 ML
     Dates: start: 20211123, end: 20211123
  6. SODIUM CHLORIDE [Concomitant]
     Active Substance: SODIUM CHLORIDE
     Dosage: 100 ML
     Dates: start: 20211123, end: 20211123

REACTIONS (6)
  - Sinus tachycardia [Recovering/Resolving]
  - Rash pruritic [Recovering/Resolving]
  - Pyrexia [Recovering/Resolving]
  - Blood pressure abnormal [Unknown]
  - Flushing [Unknown]
  - Nausea [Unknown]

NARRATIVE: CASE EVENT DATE: 20211123
